FAERS Safety Report 5838080-9 (Version None)
Quarter: 2008Q3

REPORT INFORMATION
  Report Type: 
  Country: None (occurrence: None)
  Receive Date: 20080808
  Receipt Date: 20080520
  Transmission Date: 20090109
  Serious: No
  Sender: FDA-Public Use
  Company Number: A0729971A

PATIENT
  Sex: Female

DRUGS (2)
  1. PAXIL [Suspect]
     Indication: DRUG USE FOR UNKNOWN INDICATION
     Dosage: 20MG PER DAY
  2. PAXIL CR [Suspect]
     Indication: DRUG USE FOR UNKNOWN INDICATION
     Dosage: 12.5MG PER DAY
     Route: 048

REACTIONS (7)
  - DYSPEPSIA [None]
  - EAR PAIN [None]
  - FEELING ABNORMAL [None]
  - NECK PAIN [None]
  - NERVOUSNESS [None]
  - TINNITUS [None]
  - WITHDRAWAL SYNDROME [None]
